FAERS Safety Report 5109868-7 (Version None)
Quarter: 2006Q3

REPORT INFORMATION
  Report Type: 
  Country: None (occurrence: None)
  Receive Date: 20060919
  Receipt Date: 20060919
  Transmission Date: 20061208
  Serious: Yes (Death, Hospitalization)
  Sender: FDA-Public Use
  Company Number: None

PATIENT
  Sex: Male
  Weight: 13.1 kg

DRUGS (9)
  1. PEG-L-ASPARAGINASE (K-H) [Suspect]
     Dosage: 1550 MILLION IU
  2. VINCRISTINE SULFATE [Suspect]
     Dosage: 2.83 MG
  3. CYTARABINE [Suspect]
     Dosage: 70 MG
  4. DEXAMETHASONE TAB [Suspect]
     Dosage: 64 MG
  5. METHOTREXATE [Suspect]
     Dosage: 12 MG
  6. BACTRIM [Concomitant]
  7. NYSTATIN [Concomitant]
  8. ZANTAC [Concomitant]
  9. ZOFRAN [Concomitant]

REACTIONS (24)
  - BLOOD PRESSURE DECREASED [None]
  - BLOOD PRESSURE IMMEASURABLE [None]
  - CARDIO-RESPIRATORY ARREST [None]
  - CYANOSIS [None]
  - DYSKINESIA [None]
  - DYSPNOEA [None]
  - GAZE PALSY [None]
  - GENERAL PHYSICAL HEALTH DETERIORATION [None]
  - GRUNTING [None]
  - LIVEDO RETICULARIS [None]
  - LOSS OF CONSCIOUSNESS [None]
  - MUSCLE RIGIDITY [None]
  - OXYGEN SATURATION DECREASED [None]
  - OXYGEN SATURATION IMMEASURABLE [None]
  - PALLOR [None]
  - PERIPHERAL COLDNESS [None]
  - PULSE PRESSURE DECREASED [None]
  - PUPIL FIXED [None]
  - PUPILLARY REFLEX IMPAIRED [None]
  - RESPIRATION ABNORMAL [None]
  - SALIVARY HYPERSECRETION [None]
  - TACHYCARDIA [None]
  - TACHYPNOEA [None]
  - VOMITING [None]
